FAERS Safety Report 16067709 (Version 1)
Quarter: 2019Q1

REPORT INFORMATION
  Report Type: Report from Study
  Country: US (occurrence: US)
  Receive Date: 20190313
  Receipt Date: 20190313
  Transmission Date: 20190418
  Serious: Yes (Hospitalization, Other)
  Sender: FDA-Public Use
  Company Number: US-ALEXION PHARMACEUTICALS INC.-A201903744

PATIENT
  Sex: Female

DRUGS (1)
  1. SOLIRIS [Suspect]
     Active Substance: ECULIZUMAB
     Indication: PRODUCT USED FOR UNKNOWN INDICATION
     Route: 065

REACTIONS (9)
  - Facial bones fracture [Unknown]
  - Nausea [Not Recovered/Not Resolved]
  - Rib fracture [Unknown]
  - Tooth fracture [Unknown]
  - Dizziness [Not Recovered/Not Resolved]
  - Spinal fracture [Unknown]
  - Vomiting [Not Recovered/Not Resolved]
  - Road traffic accident [Unknown]
  - Cerebral haemorrhage [Unknown]

NARRATIVE: CASE EVENT DATE: 20190124
